FAERS Safety Report 15576651 (Version 3)
Quarter: 2019Q3

REPORT INFORMATION
  Report Type: Spontaneous
  Country: CA (occurrence: CA)
  Receive Date: 20181101
  Receipt Date: 20190927
  Transmission Date: 20191004
  Serious: Yes (Other)
  Sender: FDA-Public Use
  Company Number: CA-PFIZER INC-2018349746

PATIENT
  Age: 64 Year
  Sex: Female
  Weight: 45 kg

DRUGS (9)
  1. VERAPAMIL [Concomitant]
     Active Substance: VERAPAMIL HYDROCHLORIDE
     Dosage: 120 MG, 1X/DAY
     Dates: start: 20150721
  2. OXYNEO [Concomitant]
     Active Substance: OXYCODONE
     Dosage: 80 MG, Q8H
     Dates: start: 20130110
  3. ASPIRIN [ACETYLSALICYLIC ACID] [Concomitant]
     Active Substance: ASPIRIN
     Dosage: 81 MG, 1X/DAY
     Dates: start: 20171010
  4. INCRUSE ELLIPTA [Concomitant]
     Active Substance: UMECLIDINIUM BROMIDE
     Dosage: 62 MG, 1X/DAY
     Dates: start: 20180417
  5. OXYNEO [Concomitant]
     Active Substance: OXYCODONE
     Dosage: 35 MG, 3X/DAY
     Dates: start: 20151221
  6. BREO ELLIPTA [Concomitant]
     Active Substance: FLUTICASONE FUROATE\VILANTEROL TRIFENATATE
     Dosage: 200 MG, 1X/DAY
     Dates: start: 20161115
  7. XELJANZ [Suspect]
     Active Substance: TOFACITINIB CITRATE
     Indication: RHEUMATOID ARTHRITIS
     Dosage: 5 MG, 2X/DAY
     Route: 048
     Dates: start: 20180907, end: 201810
  8. XELJANZ [Suspect]
     Active Substance: TOFACITINIB CITRATE
     Dosage: 5 MG, UNK
     Route: 048
     Dates: start: 201810
  9. LOSEC [Concomitant]
     Active Substance: OMEPRAZOLE
     Dosage: 20 MG, 1X/DAY
     Dates: start: 20130110

REACTIONS (2)
  - Lung disorder [Not Recovered/Not Resolved]
  - Hernia [Unknown]

NARRATIVE: CASE EVENT DATE: 2018
